FAERS Safety Report 6452441-9 (Version None)
Quarter: 2009Q4

REPORT INFORMATION
  Report Type: 
  Country: None (occurrence: None)
  Receive Date: 20091123
  Receipt Date: 20091116
  Transmission Date: 20100525
  Serious: Yes (Death, Hospitalization)
  Sender: FDA-Public Use
  Company Number: US-GENENTECH-289966

PATIENT
  Sex: Female

DRUGS (18)
  1. BEVACIZUMAB [Suspect]
     Indication: DRUG USE FOR UNKNOWN INDICATION
     Dosage: UNK
     Dates: start: 20090818
  2. CT-322 [Suspect]
     Indication: GLIOBLASTOMA MULTIFORME
     Dosage: 32 MG, QD
     Route: 042
     Dates: start: 20090225, end: 20090804
  3. TEMOZOLOMIDE [Suspect]
     Indication: GLIOBLASTOMA MULTIFORME
     Dosage: 125 MG, QD
     Route: 048
     Dates: start: 20090225, end: 20090401
  4. TEMOZOLOMIDE [Suspect]
     Dosage: 255 MG, QD
     Dates: start: 20090505, end: 20090509
  5. TEMOZOLOMIDE [Suspect]
     Dosage: 255 MG, QD
     Dates: start: 20090602, end: 20090606
  6. TEMOZOLOMIDE [Suspect]
     Dosage: 340 MG, QD
     Dates: start: 20090620, end: 20090704
  7. TEMOZOLOMIDE [Suspect]
     Dosage: 340 MG, QD
     Dates: start: 20090728, end: 20090801
  8. RADIATION THERAPY [Suspect]
     Indication: GLIOBLASTOMA MULTIFORME
     Dosage: UNK
     Dates: start: 20090225, end: 20090807
  9. IRINOTECAN HCL [Suspect]
     Indication: DRUG USE FOR UNKNOWN INDICATION
     Dosage: UNK
     Dates: start: 20090818
  10. PAXIL [Concomitant]
     Indication: DRUG USE FOR UNKNOWN INDICATION
  11. LOTREL [Concomitant]
     Indication: DRUG USE FOR UNKNOWN INDICATION
  12. KEPPRA [Concomitant]
     Indication: DRUG USE FOR UNKNOWN INDICATION
  13. POTASSIUM CHLORIDE [Concomitant]
     Indication: DRUG USE FOR UNKNOWN INDICATION
  14. CALCIUM NOS/CHOLECALCIFEROL [Concomitant]
     Indication: DRUG USE FOR UNKNOWN INDICATION
  15. MULTI-VITAMIN [Concomitant]
     Indication: DRUG USE FOR UNKNOWN INDICATION
  16. PRILOSEC [Concomitant]
     Indication: DRUG USE FOR UNKNOWN INDICATION
  17. BACTRIM [Concomitant]
     Indication: DRUG USE FOR UNKNOWN INDICATION
  18. DECADRON [Concomitant]
     Indication: DRUG USE FOR UNKNOWN INDICATION

REACTIONS (6)
  - ASTHENIA [None]
  - DEHYDRATION [None]
  - DISEASE PROGRESSION [None]
  - NEUTROPENIA [None]
  - PANCYTOPENIA [None]
  - THROMBOCYTOPENIA [None]
